FAERS Safety Report 20256551 (Version 3)
Quarter: 2022Q2

REPORT INFORMATION
  Report Type: Spontaneous
  Country: US (occurrence: US)
  Receive Date: 20211230
  Receipt Date: 20220504
  Transmission Date: 20220721
  Serious: No
  Sender: FDA-Public Use
  Company Number: US-PFIZER INC-202101836972

PATIENT
  Age: 72 Year
  Sex: Female

DRUGS (5)
  1. IBRANCE [Interacting]
     Active Substance: PALBOCICLIB
     Dosage: 125 MG
     Dates: start: 20211215, end: 202112
  2. IBRANCE [Interacting]
     Active Substance: PALBOCICLIB
     Dosage: 125 MG
     Dates: start: 20211217, end: 202112
  3. IBRANCE [Interacting]
     Active Substance: PALBOCICLIB
     Dosage: 125 MG
     Dates: start: 20211220
  4. IBRANCE [Interacting]
     Active Substance: PALBOCICLIB
     Dosage: 100 MG
  5. NORCO [Interacting]
     Active Substance: ACETAMINOPHEN\HYDROCODONE BITARTRATE
     Dosage: UNK

REACTIONS (9)
  - Drug interaction [Unknown]
  - Dry mouth [Unknown]
  - Dizziness [Unknown]
  - Muscle spasms [Unknown]
  - Disease recurrence [Unknown]
  - Fatigue [Unknown]
  - Hyperhidrosis [Unknown]
  - Alopecia [Unknown]
  - Product dose omission issue [Unknown]

NARRATIVE: CASE EVENT DATE: 20211201
